FAERS Safety Report 22335957 (Version 1)
Quarter: 2023Q2

REPORT INFORMATION
  Report Type: Spontaneous
  Country: US (occurrence: None)
  Receive Date: 20230518
  Receipt Date: 20230518
  Transmission Date: 20230722
  Serious: No
  Sender: FDA-Public Use
  Company Number: US-ROCHE-3158926

PATIENT
  Age: 75 Year
  Sex: Female
  Weight: 81.72 kg

DRUGS (6)
  1. ACTEMRA [Suspect]
     Active Substance: TOCILIZUMAB
     Indication: Rheumatoid arthritis
     Dosage: YES
     Route: 058
     Dates: start: 20220807
  2. ACTEMRA [Suspect]
     Active Substance: TOCILIZUMAB
  3. METHYLPREDNISOLONE [Concomitant]
     Active Substance: METHYLPREDNISOLONE
     Dosage: NO
  4. METHYLPREDNISOLONE [Concomitant]
     Active Substance: METHYLPREDNISOLONE
  5. METHYLPREDNISOLONE [Concomitant]
     Active Substance: METHYLPREDNISOLONE
  6. PREDNISONE [Concomitant]
     Active Substance: PREDNISONE

REACTIONS (4)
  - Device difficult to use [Unknown]
  - Swelling [Unknown]
  - Arthralgia [Unknown]
  - Urticaria [Unknown]

NARRATIVE: CASE EVENT DATE: 20220807
